FAERS Safety Report 4355698-3 (Version None)
Quarter: 2004Q2

REPORT INFORMATION
  Report Type: 
  Country: None (occurrence: None)
  Receive Date: 20040507
  Receipt Date: 20040422
  Transmission Date: 20050107
  Serious: Yes (Hospitalization)
  Sender: FDA-Public Use
  Company Number: 2004-0007017

PATIENT
  Age: 65 Year
  Sex: Male
  Weight: 117.028 kg

DRUGS (3)
  1. HEPSERA (ADEFOVIR DIPIVOXIL) [Suspect]
     Indication: HEPATITIS B
     Dosage: 10 MG, 1 IN 1 D, ORAL
     Route: 048
     Dates: start: 20031021
  2. NEORAL [Suspect]
     Indication: IMMUNOSUPPRESSION
     Dates: start: 19920101
  3. URSO (URODEOXYCHOLIC ACID) [Concomitant]

REACTIONS (5)
  - CONDITION AGGRAVATED [None]
  - DRUG INTERACTION [None]
  - DRUG LEVEL DECREASED [None]
  - HEPATITIS B [None]
  - LIVER TRANSPLANT REJECTION [None]
